FAERS Safety Report 10354129 (Version 4)
Quarter: 2019Q3

REPORT INFORMATION
  Report Type: Report from Study
  Country: US (occurrence: US)
  Receive Date: 20140731
  Receipt Date: 20190827
  Transmission Date: 20191004
  Serious: Yes (Hospitalization, Other)
  Sender: FDA-Public Use
  Company Number: US-SA-2014SA099860

PATIENT
  Age: 49 Year
  Sex: Female

DRUGS (1)
  1. AGALSIDASE BETA [Suspect]
     Active Substance: AGALSIDASE BETA
     Indication: FABRY^S DISEASE
     Dosage: 130 MG,QOW
     Route: 041
     Dates: start: 20120330

REACTIONS (7)
  - Nephrolithiasis [Recovered/Resolved]
  - Transient ischaemic attack [Recovered/Resolved]
  - Hospitalisation [Unknown]
  - Nasopharyngitis [Not Recovered/Not Resolved]
  - Aphonia [Not Recovered/Not Resolved]
  - Hypoaesthesia [Recovering/Resolving]
  - Chest pain [Unknown]

NARRATIVE: CASE EVENT DATE: 20140724
